FAERS Safety Report 18690959 (Version 2)
Quarter: 2021Q1

REPORT INFORMATION
  Report Type: Spontaneous
  Country: US (occurrence: US)
  Receive Date: 20210101
  Receipt Date: 20210210
  Transmission Date: 20210419
  Serious: No
  Sender: FDA-Public Use
  Company Number: US-ASTRAZENECA-2020SF64136

PATIENT
  Sex: Male
  Weight: 91.6 kg

DRUGS (3)
  1. BYDUREON BCISE [Suspect]
     Active Substance: EXENATIDE
     Indication: TYPE 2 DIABETES MELLITUS
     Route: 058
     Dates: start: 2016
  2. BYDUREON [Suspect]
     Active Substance: EXENATIDE
     Indication: TYPE 2 DIABETES MELLITUS
     Route: 058
  3. INSULIN [Concomitant]
     Active Substance: INSULIN NOS

REACTIONS (8)
  - Eructation [Unknown]
  - Intentional device misuse [Not Recovered/Not Resolved]
  - Needle issue [Unknown]
  - Blood glucose increased [Not Recovered/Not Resolved]
  - Device leakage [Unknown]
  - Injection site mass [Unknown]
  - Glycosylated haemoglobin increased [Not Recovered/Not Resolved]
  - Incorrect dose administered by device [Not Recovered/Not Resolved]
